FAERS Safety Report 9172421 (Version 1)
Quarter: 2012Q4

REPORT INFORMATION
  Report Type: 
  Country: US (occurrence: US)
  Receive Date: 20120911
  Receipt Date: 20120911
  Transmission Date: 20130627
  Serious: Yes (Other)
  Sender: FDA-Public Use
  Company Number: PHHY2012US078282

PATIENT
  Age: 75 Year
  Sex: Male

DRUGS (1)
  1. HYDROCHLOROTHIAZIDE [Suspect]
     Indication: HYPERTENSION
     Dates: start: 2004

REACTIONS (7)
  - Mycosis fungoides stage II [Recovering/Resolving]
  - Skin plaque [Recovering/Resolving]
  - Lymphocytic infiltration [Recovering/Resolving]
  - Skin lesion [Recovering/Resolving]
  - Lymphocyte morphology abnormal [Recovering/Resolving]
  - CD4/CD8 ratio increased [Recovering/Resolving]
  - Rash [Recovering/Resolving]
